FAERS Safety Report 13773304 (Version 1)
Quarter: 2017Q3

REPORT INFORMATION
  Report Type: Spontaneous
  Country: US (occurrence: US)
  Receive Date: 20170720
  Receipt Date: 20170720
  Transmission Date: 20171127
  Serious: No
  Sender: FDA-Public Use
  Company Number: US-GALDERMA-US17002752

PATIENT
  Sex: Female

DRUGS (1)
  1. ORACEA [Suspect]
     Active Substance: DOXYCYCLINE
     Indication: ROSACEA
     Route: 048
     Dates: start: 2016

REACTIONS (3)
  - Pharyngitis streptococcal [Unknown]
  - Drug interaction [Unknown]
  - Drug ineffective [Unknown]
